FAERS Safety Report 24846311 (Version 1)
Quarter: 2025Q1

REPORT INFORMATION
  Report Type: Spontaneous
  Country: DE (occurrence: DE)
  Receive Date: 20250115
  Receipt Date: 20250115
  Transmission Date: 20250408
  Serious: No
  Sender: TRAVERE THERAPEUTICS
  Company Number: DE-BEH-2024187946

PATIENT
  Sex: Male

DRUGS (2)
  1. FILSPARI [Suspect]
     Active Substance: SPARSENTAN
     Indication: Proteinuria
     Route: 065
  2. FILSPARI [Suspect]
     Active Substance: SPARSENTAN
     Route: 065

REACTIONS (1)
  - Drug ineffective [Unknown]
